FAERS Safety Report 15366883 (Version 2)
Quarter: 2018Q3

REPORT INFORMATION
  Report Type: Spontaneous
  Country: CA (occurrence: CA)
  Receive Date: 20180910
  Receipt Date: 20180917
  Transmission Date: 20181010
  Serious: Yes (Life-Threatening, Other)
  Sender: FDA-Public Use
  Company Number: CA-MYLANLABS-2018M1065993

PATIENT
  Age: 82 Year
  Sex: Male
  Weight: 71 kg

DRUGS (10)
  1. ASA [Concomitant]
     Active Substance: ASPIRIN
     Dosage: UNK
  2. DILTIAZEM. [Concomitant]
     Active Substance: DILTIAZEM
     Dosage: UNK
  3. BUPROPION HYDROCHLORIDE XL [Concomitant]
     Active Substance: BUPROPION HYDROCHLORIDE
     Dosage: UNK
  4. VITAMIN D                          /00107901/ [Concomitant]
     Active Substance: ERGOCALCIFEROL
     Dosage: UNK
  5. ATORVASTATIN [Concomitant]
     Active Substance: ATORVASTATIN
     Dosage: UNK
  6. LEVOTHYROXINE. [Concomitant]
     Active Substance: LEVOTHYROXINE
     Dosage: UNK
  7. HYDROXYCHLOROQUINE [Concomitant]
     Active Substance: HYDROXYCHLOROQUINE
     Dosage: UNK
  8. INSULIN GLARGINE [Concomitant]
     Active Substance: INSULIN GLARGINE
     Dosage: UNK
     Route: 058
  9. LORAZEPAM. [Concomitant]
     Active Substance: LORAZEPAM
     Dosage: UNK
  10. GEN?CLOZAPINE [Suspect]
     Active Substance: CLOZAPINE
     Indication: MAJOR DEPRESSION
     Dosage: 175 MG, UNK
     Route: 048

REACTIONS (11)
  - Loss of consciousness [Recovered/Resolved]
  - Myoclonus [Recovered/Resolved]
  - Hypotonia [Recovered/Resolved]
  - Product use in unapproved indication [Unknown]
  - Hyporeflexia [Recovered/Resolved]
  - Drug titration error [Recovered/Resolved]
  - Muscle contractions involuntary [Recovered/Resolved]
  - Salivary hypersecretion [Recovered/Resolved]
  - Somnolence [Recovered/Resolved]
  - Wrong dose [Recovered/Resolved]
  - Muscular weakness [Recovered/Resolved]
